FAERS Safety Report 19802810 (Version 1)
Quarter: 2021Q3

REPORT INFORMATION
  Report Type: Spontaneous
  Country: US (occurrence: US)
  Receive Date: 20210908
  Receipt Date: 20210908
  Transmission Date: 20211014
  Serious: Yes (Other)
  Sender: FDA-Public Use
  Company Number: US-GLAXOSMITHKLINE-US2021GSK190587

PATIENT
  Sex: Male

DRUGS (10)
  1. RANITIDINE HYDROCHLORIDE. [Suspect]
     Active Substance: RANITIDINE HYDROCHLORIDE
     Indication: GASTROOESOPHAGEAL REFLUX DISEASE
     Dosage: UNK UNK, QD
     Route: 065
     Dates: start: 201701, end: 202101
  2. RANITIDINE CAPSULE [Suspect]
     Active Substance: RANITIDINE
     Indication: GASTRIC DISORDER
     Dosage: 150 MG, QD
     Route: 065
     Dates: start: 201201, end: 201701
  3. RANITIDINE CAPSULE [Suspect]
     Active Substance: RANITIDINE
     Indication: GASTROOESOPHAGEAL REFLUX DISEASE
     Dosage: 75 MG, QD
     Route: 065
     Dates: start: 201201, end: 201701
  4. RANITIDINE CAPSULE [Suspect]
     Active Substance: RANITIDINE
     Dosage: 150 MG, OCASSIONAL
     Route: 065
     Dates: start: 201201, end: 201701
  5. RANITIDINE. [Suspect]
     Active Substance: RANITIDINE
     Indication: GASTROOESOPHAGEAL REFLUX DISEASE
     Dosage: 75 MG, OCCASIONAL
     Route: 065
     Dates: start: 201201, end: 201701
  6. RANITIDINE. [Suspect]
     Active Substance: RANITIDINE
     Indication: GASTRIC DISORDER
     Dosage: 150 MG, OCCASIONAL
     Route: 065
     Dates: start: 201201, end: 201701
  7. ZANTAC [Suspect]
     Active Substance: RANITIDINE HYDROCHLORIDE
     Indication: GASTRIC DISORDER
     Dosage: 150 MG, QD
     Route: 065
     Dates: start: 201201, end: 201701
  8. RANITIDINE HYDROCHLORIDE. [Suspect]
     Active Substance: RANITIDINE HYDROCHLORIDE
     Indication: GASTRIC DISORDER
  9. RANITIDINE CAPSULE [Suspect]
     Active Substance: RANITIDINE
     Dosage: 75 MG, OCASSIONAL
     Route: 065
     Dates: start: 201201, end: 201701
  10. ZANTAC [Suspect]
     Active Substance: RANITIDINE HYDROCHLORIDE
     Indication: GASTROOESOPHAGEAL REFLUX DISEASE
     Dosage: 75 MG, QD
     Route: 065
     Dates: start: 201201, end: 201701

REACTIONS (1)
  - Prostate cancer [Unknown]
